FAERS Safety Report 4498309-9 (Version None)
Quarter: 2004Q4

REPORT INFORMATION
  Report Type: 
  Country: None (occurrence: None)
  Receive Date: 20041109
  Receipt Date: 20041109
  Transmission Date: 20050328
  Serious: Yes (Hospitalization)
  Sender: FDA-Public Use
  Company Number: None

PATIENT
  Sex: Male
  Weight: 61 kg

DRUGS (10)
  1. FLUDARABINE 57MG [Suspect]
     Dosage: 57 MG QD IV
     Route: 042
     Dates: start: 20040418, end: 20040422
  2. CAMPATH [Suspect]
     Dosage: 20 MG QD IV
     Route: 042
     Dates: start: 20040418, end: 20040422
  3. MELPHALAN 290 MG [Suspect]
     Dosage: 290 IV
     Route: 042
     Dates: start: 20040423
  4. DIFLUCAN [Concomitant]
  5. ACYCLOVIR [Concomitant]
  6. BACTRIM [Concomitant]
  7. WARFARIN [Concomitant]
  8. NORVASC [Concomitant]
  9. PENICILLIN [Concomitant]
  10. PALQUINIL [Concomitant]

REACTIONS (4)
  - GASTROENTERITIS ESCHERICHIA COLI [None]
  - LARGE INTESTINE PERFORATION [None]
  - PNEUMATOSIS [None]
  - PNEUMOPERITONEUM [None]
